FAERS Safety Report 14541141 (Version 1)
Quarter: 2018Q1

REPORT INFORMATION
  Report Type: Spontaneous
  Country: US (occurrence: US)
  Receive Date: 20180216
  Receipt Date: 20180216
  Transmission Date: 20180509
  Serious: Yes (Other)
  Sender: FDA-Public Use
  Company Number: US-BAYER-2018-026415

PATIENT
  Age: 67 Year
  Sex: Female
  Weight: 48.07 kg

DRUGS (2)
  1. ALEVE [Suspect]
     Active Substance: NAPROXEN SODIUM
     Indication: PAIN
     Dosage: 2 DF, HS
     Route: 048
     Dates: start: 2016, end: 201710
  2. ALEVE [Suspect]
     Active Substance: NAPROXEN SODIUM
     Indication: ARTHRALGIA

REACTIONS (3)
  - Diarrhoea [Recovering/Resolving]
  - Incorrect drug administration duration [Unknown]
  - Colitis microscopic [Recovering/Resolving]
